FAERS Safety Report 9527576 (Version 4)
Quarter: 2013Q4

REPORT INFORMATION
  Report Type: Spontaneous
  Country: US (occurrence: None)
  Receive Date: 20130913
  Receipt Date: 20131115
  Transmission Date: 20140711
  Serious: Yes (Life-Threatening, Hospitalization, Other)
  Sender: FDA-Public Use
  Company Number: 2013US002437

PATIENT
  Age: 60 Year
  Sex: Male
  Weight: 67 kg

DRUGS (11)
  1. PONATINIB [Suspect]
     Indication: GASTROINTESTINAL STROMAL TUMOUR
     Route: 048
     Dates: start: 20130821, end: 20130902
  2. IMODIUM (LOPERAMIDE HYDROCHLORIDE) [Concomitant]
  3. JANUVIA (SITAGLIPTIN PHOSPHATE) [Concomitant]
  4. LORAZEPAM (LORAZEPAM) [Concomitant]
  5. MAGNESIUM OXIDE (MAGNESIUM OXIDE) [Concomitant]
  6. METFORMIN (METFORMIN) [Concomitant]
  7. OXYCODONE (OXYCODONE HYDROCHLORIDE) (OXYCODONE) [Concomitant]
  8. OXYCODONE HCL ER (OXYCODONE HYDROCHLORIDE) [Concomitant]
  9. POTASSIUM CHLORIDE (POTASSIUM CHLORIDE) [Concomitant]
  10. LISINOPRIL (LISINOPRIL DIHYDRATE) (UNKNOWN [Concomitant]
  11. ZOFRAN (ONDANESTRON HYDROCHLORIDE) [Concomitant]

REACTIONS (6)
  - Respiratory failure [None]
  - Sinus tachycardia [None]
  - Hyperglycaemia [None]
  - Sepsis [None]
  - Cardiac failure congestive [None]
  - Myocardial ischaemia [None]
